FAERS Safety Report 10191379 (Version 1)
Quarter: 2014Q2

REPORT INFORMATION
  Report Type: Spontaneous
  Country: US (occurrence: US)
  Receive Date: 20140523
  Receipt Date: 20140523
  Transmission Date: 20141212
  Serious: Yes (Hospitalization)
  Sender: FDA-Public Use
  Company Number: US-PFIZER INC-2014136282

PATIENT
  Age: 72 Year
  Sex: Male
  Weight: 117.91 kg

DRUGS (6)
  1. REVATIO [Suspect]
     Indication: CARDIAC DISORDER
     Dosage: 20 MG, 2X/DAY
     Route: 048
     Dates: start: 20140204
  2. REVATIO [Suspect]
     Indication: VASODILATATION
  3. COREG [Concomitant]
     Dosage: UNK
  4. LISINOPRIL [Concomitant]
     Dosage: UNK
  5. PRAVASTATIN [Concomitant]
     Dosage: UNK
  6. DEMADEX [Concomitant]
     Indication: DIURETIC THERAPY
     Dosage: UNK

REACTIONS (2)
  - Atrial flutter [Unknown]
  - Pulmonary oedema [Unknown]
